FAERS Safety Report 9735589 (Version 1)
Quarter: 2013Q4

REPORT INFORMATION
  Report Type: Spontaneous
  Country: US (occurrence: None)
  Receive Date: 20131205
  Receipt Date: 20131205
  Transmission Date: 20140711
  Serious: Yes (Hospitalization)
  Sender: FDA-Public Use
  Company Number: None

PATIENT
  Age: 50 Year
  Sex: Female
  Weight: 81.14 kg

DRUGS (1)
  1. SUNITINIB MALATE [Suspect]

REACTIONS (4)
  - Toxicity to various agents [None]
  - Headache [None]
  - Leukoencephalopathy [None]
  - Dyspnoea [None]
